FAERS Safety Report 10330770 (Version 1)
Quarter: 2014Q3

REPORT INFORMATION
  Report Type: Spontaneous
  Country: CN (occurrence: None)
  Receive Date: 20140718
  Receipt Date: 20140718
  Transmission Date: 20150326
  Serious: Yes (Death)
  Sender: FDA-Public Use
  Company Number: 2014CN00683

PATIENT

DRUGS (2)
  1. GEMCITABINE [Suspect]
     Active Substance: GEMCITABINE\GEMCITABINE HYDROCHLORIDE
     Indication: ADENOCARCINOMA PANCREAS
     Dosage: 1000 MG/M2 ( ON DAYS 1, 8, AND 15), INFUSION
  2. M2ES (POLYETHYLENE GLYCOSYLATED RECOMBINANT HUMAN ENDOSTATIN) [Suspect]
     Active Substance: ENDOSTATIN
     Indication: ADENOCARCINOMA PANCREAS
     Dosage: 15 MG/M2 ( LEVEL 3), ON DAYS 1, 8, 15 AND 21, INTRAVENOUS
     Route: 042

REACTIONS (2)
  - Tumour haemorrhage [None]
  - Small intestinal haemorrhage [None]
